FAERS Safety Report 13299053 (Version 3)
Quarter: 2017Q2

REPORT INFORMATION
  Report Type: Spontaneous
  Country: CH (occurrence: CH)
  Receive Date: 20170306
  Receipt Date: 20170410
  Transmission Date: 20170830
  Serious: Yes (Hospitalization)
  Sender: FDA-Public Use
  Company Number: CH-LPDUSPRD-20170222

PATIENT
  Age: 69 Year
  Sex: Female

DRUGS (1)
  1. FERINJECT [Suspect]
     Active Substance: FERRIC CARBOXYMALTOSE
     Dosage: 500MG IN 250ML NACL
     Route: 041
     Dates: start: 20170213

REACTIONS (2)
  - Cerebrovascular accident [Unknown]
  - Product preparation error [Unknown]

NARRATIVE: CASE EVENT DATE: 201702
